FAERS Safety Report 5042543-6 (Version None)
Quarter: 2006Q2

REPORT INFORMATION
  Report Type: 
  Country: None (occurrence: None)
  Receive Date: 20060627
  Receipt Date: 20060620
  Transmission Date: 20061013
  Serious: Yes (Hospitalization)
  Sender: FDA-Public Use
  Company Number: 2006-04-1391

PATIENT
  Age: 71 Year
  Sex: Male

DRUGS (4)
  1. TEMODAL [Suspect]
     Indication: GLIOBLASTOMA
     Dosage: 135 MG QD ORAL
     Route: 048
     Dates: start: 20060201, end: 20060316
  2. DOXEPIN HCL [Suspect]
     Dosage: 75 MG QD ORAL
     Route: 048
  3. SALBUTAMOL SULPHATE TABLETS [Suspect]
     Dosage: 8 MG QD ORAL
     Route: 048
  4. RADIATION THERAPY [Concomitant]

REACTIONS (3)
  - HEPATOCELLULAR DAMAGE [None]
  - HEPATOTOXICITY [None]
  - JAUNDICE [None]
